FAERS Safety Report 7745134-9 (Version None)
Quarter: 2011Q3

REPORT INFORMATION
  Report Type: 
  Country: None (occurrence: None)
  Receive Date: 20110913
  Receipt Date: 20100111
  Transmission Date: 20111222
  Serious: No
  Sender: FDA-Public Use
  Company Number: 2010BI003291

PATIENT
  Sex: Female

DRUGS (2)
  1. LITHIUM [Concomitant]
     Indication: BIPOLAR DISORDER
  2. TYSABRI [Suspect]
     Indication: MULTIPLE SCLEROSIS
     Route: 042
     Dates: start: 20090914

REACTIONS (7)
  - ARTHROPATHY [None]
  - STRESS [None]
  - MEMORY IMPAIRMENT [None]
  - ROTATOR CUFF SYNDROME [None]
  - FATIGUE [None]
  - COGNITIVE DISORDER [None]
  - ARTHRALGIA [None]
